FAERS Safety Report 8037523-2 (Version None)
Quarter: 2012Q1

REPORT INFORMATION
  Report Type: 
  Country: None (occurrence: None)
  Receive Date: 20120111
  Receipt Date: 20120104
  Transmission Date: 20120608
  Serious: Yes (Hospitalization)
  Sender: FDA-Public Use
  Company Number: US-BAYER-2011-014275

PATIENT
  Age: 41 Year
  Sex: Female
  Weight: 79 kg

DRUGS (12)
  1. YASMIN [Suspect]
     Indication: ACNE
  2. DROSPIRENONE AND ETHINYL ESTRADIOL [Suspect]
     Indication: ACNE
  3. DROSPIRENONE AND ETHINYL ESTRADIOL [Suspect]
     Indication: PREMENSTRUAL SYNDROME
  4. DEXATRIM [Concomitant]
  5. DROSPIRENONE AND ETHINYL ESTRADIOL [Suspect]
     Indication: CONTRACEPTION
     Dosage: UNK
     Dates: start: 20051024, end: 20101024
  6. YASMIN [Suspect]
     Indication: PREMENSTRUAL SYNDROME
  7. WELCHOL [Concomitant]
     Dosage: 625 MG, UNK
  8. COLESTIPOL HYDROCHLORIDE [Concomitant]
     Dosage: 1 G, UNK
  9. ACETAMINOPHEN W/ CODEINE [Concomitant]
  10. YASMIN [Suspect]
     Indication: CONTRACEPTION
     Dosage: UNK
     Dates: start: 20051024, end: 20101024
  11. OMEPRAZOLE [Concomitant]
     Dosage: 20 MG, UNK
  12. FAMOTIDINE [Concomitant]
     Dosage: 20 MG, UNK

REACTIONS (5)
  - BILIARY DYSKINESIA [None]
  - ANXIETY [None]
  - PAIN [None]
  - EMOTIONAL DISTRESS [None]
  - ABDOMINAL PAIN [None]
